FAERS Safety Report 23848062 (Version 1)
Quarter: 2024Q2

REPORT INFORMATION
  Report Type: Spontaneous
  Country: IS (occurrence: IS)
  Receive Date: 20240513
  Receipt Date: 20240513
  Transmission Date: 20240716
  Serious: Yes (Hospitalization, Other)
  Sender: FDA-Public Use
  Company Number: None

PATIENT
  Sex: Male

DRUGS (2)
  1. KEYTRUDA [Suspect]
     Active Substance: PEMBROLIZUMAB
     Indication: Lung neoplasm malignant
     Dosage: 2 MG/KG EVERY 3 WEEKS
     Dates: start: 20230307
  2. AMOXICILLIN\CLAVULANIC ACID [Suspect]
     Active Substance: AMOXICILLIN\CLAVULANIC ACID
     Indication: Pneumonia
     Dosage: 1 TABLET  X 3 PER DAY
     Dates: start: 20240221, end: 20240307

REACTIONS (11)
  - Embolism [Unknown]
  - Pneumonia [Unknown]
  - Pneumonia [Unknown]
  - Drug-induced liver injury [Unknown]
  - Lung infiltration [Unknown]
  - Malaise [Unknown]
  - Malaise [Unknown]
  - Dyspnoea [Unknown]
  - Pyrexia [Unknown]
  - Pyrexia [Unknown]
  - Pyrexia [Unknown]

NARRATIVE: CASE EVENT DATE: 20240307
